FAERS Safety Report 16981522 (Version 3)
Quarter: 2025Q1

REPORT INFORMATION
  Report Type: Spontaneous
  Country: AR (occurrence: AR)
  Receive Date: 20191101
  Receipt Date: 20250203
  Transmission Date: 20250409
  Serious: Yes (Congenital Anomaly, Other)
  Sender: AMGEN
  Company Number: AR-PFIZER INC-2019464800

PATIENT

DRUGS (1)
  1. ENBREL [Suspect]
     Active Substance: ETANERCEPT
     Indication: Exposure during pregnancy
     Dosage: 50 MG, WEEKLY
     Route: 064

REACTIONS (2)
  - Foetal malformation [Unknown]
  - Maternal exposure during pregnancy [Unknown]

NARRATIVE: CASE EVENT DATE: 20190601
